FAERS Safety Report 10055693 (Version 1)
Quarter: 2014Q2

REPORT INFORMATION
  Report Type: Spontaneous
  Country: US (occurrence: None)
  Receive Date: 20140402
  Receipt Date: 20140402
  Transmission Date: 20141212
  Serious: Yes (Other)
  Sender: FDA-Public Use
  Company Number: None

PATIENT
  Age: 41 Year
  Sex: Male
  Weight: 75.75 kg

DRUGS (1)
  1. XOLAIR [Suspect]

REACTIONS (6)
  - Myocardial infarction [None]
  - Chest pain [None]
  - Chest discomfort [None]
  - Hypertension [None]
  - Anxiety [None]
  - Presyncope [None]
